FAERS Safety Report 17488526 (Version 1)
Quarter: 2020Q1

REPORT INFORMATION
  Report Type: Spontaneous
  Country: US (occurrence: US)
  Receive Date: 20200220
  Receipt Date: 20200220
  Transmission Date: 20200409
  Serious: Yes (Hospitalization)
  Sender: FDA-Public Use
  Company Number: None

PATIENT
  Age: 61 Year
  Sex: Male

DRUGS (2)
  1. GLEOSTINE [Suspect]
     Active Substance: LOMUSTINE
     Dosage: 200MG DAY 1, U.D. ORAL
     Route: 048
     Dates: start: 20191231
  2. TEMOZOLOMIDE 180 MG CAP [Suspect]
     Active Substance: TEMOZOLOMIDE
     Indication: BRAIN NEOPLASM MALIGNANT
     Dosage: ?          OTHER FREQUENCY:2 CAP DAILY;?
     Route: 048
     Dates: start: 20180331

REACTIONS (6)
  - Diarrhoea [None]
  - Nausea [None]
  - Angiopathy [None]
  - Infection [None]
  - Full blood count decreased [None]
  - Platelet count decreased [None]

NARRATIVE: CASE EVENT DATE: 20200118
